FAERS Safety Report 4641207-8 (Version None)
Quarter: 2005Q2

REPORT INFORMATION
  Report Type: 
  Country: None (occurrence: None)
  Receive Date: 20050420
  Receipt Date: 20050420
  Transmission Date: 20051028
  Serious: Yes (Other)
  Sender: FDA-Public Use
  Company Number: None

PATIENT
  Age: 44 Year
  Sex: Male
  Weight: 88.905 kg

DRUGS (9)
  1. NEXIUM [Suspect]
     Indication: GASTROOESOPHAGEAL REFLUX DISEASE
     Dosage: 40 MG   TWICE DAILY  ORAL
     Route: 048
     Dates: start: 20030101, end: 20050419
  2. SINGULAIR [Concomitant]
  3. ALLEGRA [Concomitant]
  4. RHINOCORT AQUA NASAL [Concomitant]
  5. ATROVENT [Concomitant]
  6. ASTELIN [Concomitant]
  7. NEURONTIN [Concomitant]
  8. PROZAC [Concomitant]
  9. LIPITOR [Concomitant]

REACTIONS (2)
  - DYSPEPSIA [None]
  - PHARMACEUTICAL PRODUCT COMPLAINT [None]
